FAERS Safety Report 13180841 (Version 1)
Quarter: 2017Q1

REPORT INFORMATION
  Report Type: Spontaneous
  Country: US (occurrence: US)
  Receive Date: 20170202
  Receipt Date: 20170202
  Transmission Date: 20170428
  Serious: No
  Sender: FDA-Public Use
  Company Number: US-SMITH AND NEPHEW, INC-2016SMT00504

PATIENT
  Age: 62 Year
  Sex: Female
  Weight: 90.7 kg

DRUGS (13)
  1. LANSOPRAZOLE. [Concomitant]
     Active Substance: LANSOPRAZOLE
  2. POTASSIUM CHLORIDE POWDER [Concomitant]
     Active Substance: POTASSIUM CHLORIDE
  3. PROPRANOLOL [Concomitant]
     Active Substance: PROPRANOLOL HYDROCHLORIDE
  4. METFORMIN [Concomitant]
     Active Substance: METFORMIN HYDROCHLORIDE
  5. CALCIUM [Concomitant]
     Active Substance: CALCIUM
  6. LAMICTAL [Concomitant]
     Active Substance: LAMOTRIGINE
     Dosage: 50 MG, 2X/DAY
  7. TYLENOL [Concomitant]
     Active Substance: ACETAMINOPHEN
  8. MULTIVITAMIN [Concomitant]
     Active Substance: VITAMINS
  9. REGRANEX [Suspect]
     Active Substance: BECAPLERMIN
     Indication: WOUND
     Dosage: UNK, 1X/DAY
     Dates: start: 201605
  10. ASPIRIN. [Concomitant]
     Active Substance: ASPIRIN
  11. CLONIDINE PATCH [Concomitant]
     Active Substance: CLONIDINE
  12. LOSARTAN AND HYDROCHLOROTHIAZIDE [Concomitant]
     Active Substance: HYDROCHLOROTHIAZIDE\LOSARTAN POTASSIUM
  13. KEPPRA [Concomitant]
     Active Substance: LEVETIRACETAM
     Dosage: 5 ML, 2X/DAY

REACTIONS (1)
  - Wound complication [Recovering/Resolving]

NARRATIVE: CASE EVENT DATE: 20160520
